FAERS Safety Report 5118617-8 (Version None)
Quarter: 2006Q4

REPORT INFORMATION
  Report Type: 
  Country: None (occurrence: None)
  Receive Date: 20061002
  Receipt Date: 20041203
  Transmission Date: 20070319
  Serious: Yes (Hospitalization, Disabling)
  Sender: FDA-Public Use
  Company Number: GB-GLAXOSMITHKLINE-B0360764A

PATIENT
  Sex: Female

DRUGS (9)
  1. PAROXETINE HYDROCHLORIDE [Suspect]
     Route: 065
     Dates: start: 20020101
  2. HRT [Concomitant]
  3. COPROXAMOL [Concomitant]
  4. LEVOTHYROXINE SODIUM [Concomitant]
  5. ATARAX [Concomitant]
  6. VIOXX [Concomitant]
  7. CETIRIZINE HCL [Concomitant]
  8. GROWTH HORMONE [Concomitant]
  9. DIAZEPAM [Concomitant]

REACTIONS (9)
  - ACCIDENTAL OVERDOSE [None]
  - DRUG WITHDRAWAL SYNDROME [None]
  - FLUSHING [None]
  - HYPERHIDROSIS [None]
  - NAUSEA [None]
  - PARAESTHESIA [None]
  - POOR QUALITY SLEEP [None]
  - SUICIDAL IDEATION [None]
  - TREMOR [None]
